FAERS Safety Report 19233602 (Version 4)
Quarter: 2022Q4

REPORT INFORMATION
  Report Type: Spontaneous
  Country: US (occurrence: None)
  Receive Date: 20210507
  Receipt Date: 20221213
  Transmission Date: 20230113
  Serious: Yes (Other)
  Sender: FDA-Public Use
  Company Number: 2021A390366

PATIENT
  Age: 47 Year
  Sex: Male
  Weight: 145.2 kg

DRUGS (37)
  1. PRILOSEC [Suspect]
     Active Substance: OMEPRAZOLE MAGNESIUM
     Indication: Gastrooesophageal reflux disease
     Route: 048
     Dates: start: 2012, end: 2018
  2. PRILOSEC [Suspect]
     Active Substance: OMEPRAZOLE MAGNESIUM
     Indication: Gastrooesophageal reflux disease
     Route: 048
  3. PRILOSEC [Suspect]
     Active Substance: OMEPRAZOLE MAGNESIUM
     Indication: Gastrooesophageal reflux disease
     Dosage: GENERIC
     Route: 065
  4. PRILOSEC [Suspect]
     Active Substance: OMEPRAZOLE MAGNESIUM
     Indication: Gastrooesophageal reflux disease
     Dosage: GENERIC
     Route: 065
     Dates: start: 2018
  5. PRILOSEC [Suspect]
     Active Substance: OMEPRAZOLE MAGNESIUM
     Indication: Gastrooesophageal reflux disease
     Dosage: GENERIC
     Route: 065
  6. PRILOSEC OTC [Suspect]
     Active Substance: OMEPRAZOLE MAGNESIUM
     Indication: Gastrooesophageal reflux disease
     Route: 048
     Dates: start: 2012, end: 2018
  7. FLUOXETINE [Concomitant]
     Active Substance: FLUOXETINE HYDROCHLORIDE
  8. METAXALONE [Concomitant]
     Active Substance: METAXALONE
  9. ACETAMINOPHEN\HYDROCODONE BITARTRATE [Concomitant]
     Active Substance: ACETAMINOPHEN\HYDROCODONE BITARTRATE
  10. BUTRANS [Concomitant]
     Active Substance: BUPRENORPHINE
  11. AMITRIPTYLINE [Concomitant]
     Active Substance: AMITRIPTYLINE
  12. CHLORHEXIDINE [Concomitant]
     Active Substance: CHLORHEXIDINE
  13. NORTRIPTYLINE [Concomitant]
     Active Substance: NORTRIPTYLINE
  14. CEPHALEXIN [Concomitant]
     Active Substance: CEPHALEXIN
  15. TAMSULOSIN [Concomitant]
     Active Substance: TAMSULOSIN
  16. DEXAMETHASONE [Concomitant]
     Active Substance: DEXAMETHASONE
  17. DIAZEPAM [Concomitant]
     Active Substance: DIAZEPAM
  18. TOPIRAMATE [Concomitant]
     Active Substance: TOPIRAMATE
  19. BACLOFEN [Concomitant]
     Active Substance: BACLOFEN
  20. MUPIROCIN [Concomitant]
     Active Substance: MUPIROCIN
  21. SERTRALINE [Concomitant]
     Active Substance: SERTRALINE HYDROCHLORIDE
  22. CEFACLOR [Concomitant]
     Active Substance: CEFACLOR
  23. ONDANSETRON [Concomitant]
     Active Substance: ONDANSETRON
  24. ZOLPIDEM [Concomitant]
     Active Substance: ZOLPIDEM TARTRATE
  25. CETIRIZINE HYDROCHLORIDE [Concomitant]
     Active Substance: CETIRIZINE HYDROCHLORIDE
  26. MELOXICAM [Concomitant]
     Active Substance: MELOXICAM
     Indication: Pain
  27. AZITHROMYCIN [Concomitant]
     Active Substance: AZITHROMYCIN
     Indication: Infection
  28. AMOXICILLIN [Concomitant]
     Active Substance: AMOXICILLIN
     Indication: Infection
  29. PIROXICAM [Concomitant]
     Active Substance: PIROXICAM
     Indication: Infection
  30. VOLTAREN [Concomitant]
     Active Substance: DICLOFENAC SODIUM
     Indication: Pain
  31. GENTAMICIN [Concomitant]
     Active Substance: GENTAMICIN
     Indication: Infection
  32. CIPROFLOXACIN [Concomitant]
     Active Substance: CIPROFLOXACIN
     Indication: Infection
  33. ACETAMINOPHEN [Concomitant]
     Active Substance: ACETAMINOPHEN
     Indication: Pain
     Dosage: AS NEEDED
  34. IBUPROFEN [Concomitant]
     Active Substance: IBUPROFEN
     Indication: Pain
     Dosage: AS NEEDED
  35. PEPCID [Concomitant]
     Active Substance: FAMOTIDINE
     Indication: Pain
     Dosage: AS NEEDED
  36. ZANTAC [Concomitant]
     Active Substance: RANITIDINE HYDROCHLORIDE
     Indication: Pain
     Dosage: AS NEEDED
  37. TUMS [Concomitant]
     Active Substance: CALCIUM CARBONATE
     Indication: Pain
     Dosage: AS NEEDED

REACTIONS (3)
  - Chronic kidney disease [Not Recovered/Not Resolved]
  - Tubulointerstitial nephritis [Not Recovered/Not Resolved]
  - Gastrooesophageal reflux disease [Not Recovered/Not Resolved]

NARRATIVE: CASE EVENT DATE: 20150101
